FAERS Safety Report 10243849 (Version 1)
Quarter: 2014Q2

REPORT INFORMATION
  Report Type: Spontaneous
  Country: US (occurrence: None)
  Receive Date: 20140616
  Receipt Date: 20140616
  Transmission Date: 20141212
  Serious: Yes (Hospitalization)
  Sender: FDA-Public Use
  Company Number: None

PATIENT
  Sex: Male
  Weight: 99.9 kg

DRUGS (2)
  1. SOFOSBUVIR [Suspect]
     Indication: HEPATITIS C
     Dosage: 400 MG 1X DAILY PO
     Route: 048
     Dates: start: 20140305
  2. RIBAVIRIN [Suspect]
     Dosage: 1200 MG - 600MG BID PO
     Route: 048

REACTIONS (3)
  - Varices oesophageal [None]
  - Haemorrhage [None]
  - Haematemesis [None]
